FAERS Safety Report 18264966 (Version 1)
Quarter: 2020Q3

REPORT INFORMATION
  Report Type: Spontaneous
  Country: US (occurrence: US)
  Receive Date: 20200914
  Receipt Date: 20200914
  Transmission Date: 20201103
  Serious: No
  Sender: FDA-Public Use
  Company Number: US-UNIQUE PHARMACEUTICAL LABORATORIES-2020RIS00283

PATIENT
  Sex: Female

DRUGS (3)
  1. UNSPECIFIED GEL CAP PRODUCT [Suspect]
     Active Substance: UNSPECIFIED INGREDIENT
     Dosage: 1 TABLETS, 1X/DAY IN THE EVENING
  2. CETIRIZINE HYDROCHLORIDE. [Suspect]
     Active Substance: CETIRIZINE HYDROCHLORIDE
     Indication: LACRIMATION INCREASED
     Dosage: UNK
  3. CETIRIZINE HYDROCHLORIDE. [Suspect]
     Active Substance: CETIRIZINE HYDROCHLORIDE
     Indication: RHINORRHOEA

REACTIONS (4)
  - Product commingling [Unknown]
  - Lacrimation increased [Not Recovered/Not Resolved]
  - Wrong product administered [Unknown]
  - Rhinorrhoea [Not Recovered/Not Resolved]
